FAERS Safety Report 16664127 (Version 2)
Quarter: 2019Q3

REPORT INFORMATION
  Report Type: Spontaneous
  Country: IL (occurrence: IL)
  Receive Date: 20190802
  Receipt Date: 20190809
  Transmission Date: 20191004
  Serious: Yes (Life-Threatening, Hospitalization, Other)
  Sender: FDA-Public Use
  Company Number: IL-ASTRAZENECA-2019SF09551

PATIENT
  Age: 16100 Day
  Sex: Female

DRUGS (1)
  1. TAGRISSO [Suspect]
     Active Substance: OSIMERTINIB
     Indication: NON-SMALL CELL LUNG CANCER
     Dosage: 80.0MG UNKNOWN
     Route: 048
     Dates: start: 20190401

REACTIONS (2)
  - Respiratory failure [Unknown]
  - Pertussis [Recovering/Resolving]

NARRATIVE: CASE EVENT DATE: 20190730
